FAERS Safety Report 13073249 (Version 1)
Quarter: 2016Q4

REPORT INFORMATION
  Report Type: Spontaneous
  Country: MY (occurrence: MY)
  Receive Date: 20161229
  Receipt Date: 20161229
  Transmission Date: 20170207
  Serious: Yes (Other)
  Sender: FDA-Public Use
  Company Number: MY-JNJFOC-20161219783

PATIENT
  Age: 62 Year
  Sex: Female

DRUGS (2)
  1. IBUPROFEN. [Suspect]
     Active Substance: IBUPROFEN
     Route: 065
  2. IBUPROFEN. [Suspect]
     Active Substance: IBUPROFEN
     Indication: MUSCULOSKELETAL PAIN
     Dosage: FIVE TABLETS OF 200 MG IBUPROFEN OVER 5 DAYS PERIOD
     Route: 065

REACTIONS (1)
  - Henoch-Schonlein purpura nephritis [Recovered/Resolved]
